FAERS Safety Report 20206433 (Version 2)
Quarter: 2022Q2

REPORT INFORMATION
  Report Type: Other
  Country: CA (occurrence: CA)
  Receive Date: 20211220
  Receipt Date: 20220426
  Transmission Date: 20220721
  Serious: Yes (Death, Other)
  Sender: FDA-Public Use
  Company Number: CA-APOTEX-2021AP046671

PATIENT
  Age: 24 Year
  Sex: Male

DRUGS (11)
  1. QUETIAPINE [Suspect]
     Active Substance: QUETIAPINE
     Indication: Insomnia
     Dosage: 100 MILLIGRAM, PRN (AS REQUIRED)
     Route: 065
  2. QUETIAPINE [Suspect]
     Active Substance: QUETIAPINE
     Dosage: 100 MILLIGRAM
     Route: 065
  3. QUETIAPINE [Suspect]
     Active Substance: QUETIAPINE
     Dosage: 100 MILLIGRAM
     Route: 048
  4. OLANZAPINE [Suspect]
     Active Substance: OLANZAPINE
     Indication: Psychotic symptom
     Dosage: 15 MILLIGRAM, QD
     Route: 065
  5. OLANZAPINE [Suspect]
     Active Substance: OLANZAPINE
     Indication: Product used for unknown indication
     Dosage: UNK, QD
     Route: 065
  6. ZUCLOPENTHIXOL ACETATE [Suspect]
     Active Substance: ZUCLOPENTHIXOL ACETATE
     Indication: Psychotic disorder
     Dosage: 50 MILLIGRAM
     Route: 030
  7. ZUCLOPENTHIXOL ACETATE [Suspect]
     Active Substance: ZUCLOPENTHIXOL ACETATE
     Indication: Mental disorder
     Dosage: UNK
     Route: 030
  8. ZUCLOPENTHIXOL ACETATE [Suspect]
     Active Substance: ZUCLOPENTHIXOL ACETATE
     Indication: Psychiatric decompensation
     Dosage: UNK UNK, QD
     Route: 030
  9. ABILIFY MAINTENA [Suspect]
     Active Substance: ARIPIPRAZOLE
     Indication: Psychotic symptom
     Dosage: 400 MILLIGRAM, Q.M.T.
     Route: 030
  10. ZUCLOPENTHIXOL [Suspect]
     Active Substance: ZUCLOPENTHIXOL
     Indication: Psychiatric decompensation
     Dosage: UNK, SINGLE (ONCE)
     Route: 065
  11. LORAZEPAM [Concomitant]
     Active Substance: LORAZEPAM
     Indication: Product used for unknown indication
     Dosage: UNK
     Route: 065

REACTIONS (18)
  - Accidental death [Fatal]
  - Cardiac failure [Fatal]
  - Ventricular arrhythmia [Fatal]
  - Acute pulmonary oedema [Fatal]
  - Arrhythmia [Fatal]
  - Iatrogenic injury [Fatal]
  - Antipsychotic drug level decreased [Fatal]
  - Anxiolytic therapy [Fatal]
  - Drug therapy enhancement [Fatal]
  - Inappropriate schedule of product administration [Fatal]
  - Prescribed overdose [Fatal]
  - Multiple drug therapy [Fatal]
  - Off label use [Fatal]
  - Paradoxical drug reaction [Fatal]
  - Product dose omission issue [Fatal]
  - Psychotic disorder [Fatal]
  - Agitation [Fatal]
  - Therapeutic product effect incomplete [Fatal]
